FAERS Safety Report 17713597 (Version 1)
Quarter: 2020Q2

REPORT INFORMATION
  Report Type: Spontaneous
  Country: DE (occurrence: DE)
  Receive Date: 20200427
  Receipt Date: 20200427
  Transmission Date: 20200714
  Serious: Yes (Hospitalization)
  Sender: FDA-Public Use
  Company Number: DE-PFIZER INC-2020162747

PATIENT
  Age: 80 Year
  Sex: Female

DRUGS (12)
  1. QUETIAPIN [Suspect]
     Active Substance: QUETIAPINE
     Dosage: 25 MG, 1-0-0-0
  2. ACTRAPID [Suspect]
     Active Substance: INSULIN HUMAN
     Dosage: 100 IU/ML, ACCORDING TO THE SCHEME
  3. BISOPROLOL [Suspect]
     Active Substance: BISOPROLOL
     Dosage: 5 MG, 1-0-1-0
  4. APIXABAN [Concomitant]
     Active Substance: APIXABAN
     Dosage: 2.5 MG, 1-0-1-0
  5. LEVOTHYROXINE SODIUM. [Concomitant]
     Active Substance: LEVOTHYROXINE SODIUM
     Dosage: 50 UG, 1-0-0-0
  6. PANTOPRAZOLE [Concomitant]
     Active Substance: PANTOPRAZOLE
     Dosage: 40 MG, 1-0-0-0
  7. ALLOPURINOL. [Concomitant]
     Active Substance: ALLOPURINOL
     Dosage: 100 MG, 0-0-1-0
  8. PREGABALIN. [Suspect]
     Active Substance: PREGABALIN
     Dosage: 50 MG TWICE DAILY (1-0-1-0)
  9. CLONIDINE. [Suspect]
     Active Substance: CLONIDINE
     Dosage: 75 MG, 0.5-0-0-0
  10. VALSARTAN. [Suspect]
     Active Substance: VALSARTAN
     Dosage: 40 MG, ONCE DAILY (1-0-0-0)
  11. INSULIN GLARGINE [Suspect]
     Active Substance: INSULIN GLARGINE
     Dosage: 300 IU/ML 16-0-0-0
  12. TORASEMIDE [Suspect]
     Active Substance: TORSEMIDE
     Dosage: 50 MG, 1X DAILY (1-0-0-0)

REACTIONS (5)
  - Pyrexia [Unknown]
  - Sedation [Unknown]
  - Hypoglycaemia [Unknown]
  - General physical health deterioration [Unknown]
  - Dehydration [Unknown]
